FAERS Safety Report 4649726-5 (Version None)
Quarter: 2005Q2

REPORT INFORMATION
  Report Type: 
  Country: None (occurrence: None)
  Receive Date: 20050427
  Receipt Date: 20050418
  Transmission Date: 20051028
  Serious: No
  Sender: FDA-Public Use
  Company Number: 05P-130-0296536-00

PATIENT
  Age: 30 Year
  Sex: Female
  Weight: 95 kg

DRUGS (3)
  1. MERIDIA [Suspect]
     Dosage: 15 MG, 1 IN 1 D, ORAL
     Route: 048
     Dates: start: 20050201, end: 20050215
  2. DIAZEPAM [Suspect]
     Dosage: 5 MG, 1 IN 1 D, ORAL
     Route: 048
     Dates: start: 20050216, end: 20050216
  3. PARACETAMOL [Concomitant]

REACTIONS (6)
  - CONFUSIONAL STATE [None]
  - DRUG INTERACTION [None]
  - DYSPNOEA [None]
  - HYPERSENSITIVITY [None]
  - LARYNGEAL OEDEMA [None]
  - MUSCULAR WEAKNESS [None]
